FAERS Safety Report 11997448 (Version 1)
Quarter: 2016Q1

REPORT INFORMATION
  Report Type: Spontaneous
  Country: NO (occurrence: NO)
  Receive Date: 20160203
  Receipt Date: 20160203
  Transmission Date: 20160526
  Serious: Yes (Other)
  Sender: FDA-Public Use
  Company Number: NO-AMGEN-NORSP2016009624

PATIENT
  Age: 77 Year
  Sex: Female

DRUGS (13)
  1. AFIPRAN [Concomitant]
     Dosage: UNK
  2. LAXOBERAL [Concomitant]
     Active Substance: SODIUM PICOSULFATE
     Dosage: UNK
  3. DUPHALAC [Concomitant]
     Active Substance: LACTULOSE
     Dosage: UNK
  4. NEURONTIN [Concomitant]
     Active Substance: GABAPENTIN
     Dosage: UNK
  5. NYCOPLUS CALCIGRAN [Concomitant]
     Dosage: UNK
  6. REMERON [Concomitant]
     Active Substance: MIRTAZAPINE
     Dosage: UNK
  7. DUROGESIC [Concomitant]
     Active Substance: FENTANYL
     Dosage: UNK
  8. CALCIGRAN FORTE [Concomitant]
  9. FERROMAX [Concomitant]
     Dosage: UNK
  10. PANODIL [Concomitant]
     Active Substance: ACETAMINOPHEN
     Dosage: UNK
  11. LEVAXIN [Concomitant]
     Active Substance: LEVOTHYROXINE SODIUM
     Dosage: UNK
  12. ZOMETA [Suspect]
     Active Substance: ZOLEDRONIC ACID
     Indication: BREAST CANCER METASTATIC
     Dosage: 4 MG, 16 TIMES IN TOTAL,UNK
     Route: 041
     Dates: start: 201005, end: 201209
  13. XGEVA [Suspect]
     Active Substance: DENOSUMAB
     Indication: BREAST CANCER METASTATIC
     Dosage: 120 MG, ADMINISTERED 8 TIMES IN TOTAL, UNK
     Route: 058
     Dates: start: 201210, end: 20130426

REACTIONS (2)
  - Osteitis [Recovered/Resolved]
  - Osteonecrosis of jaw [Recovered/Resolved]

NARRATIVE: CASE EVENT DATE: 20130507
